FAERS Safety Report 8992496 (Version 2)
Quarter: 2013Q1

REPORT INFORMATION
  Report Type: Report from Study
  Country: SE (occurrence: SE)
  Receive Date: 20130101
  Receipt Date: 20130111
  Transmission Date: 20140127
  Serious: Yes (Hospitalization)
  Sender: FDA-Public Use
  Company Number: SE-ACCORD-015811

PATIENT
  Sex: 0

DRUGS (1)
  1. ETOPOSIDE [Suspect]
     Indication: PRODUCT USED FOR UNKNOWN INDICATION
     Dates: start: 2002

REACTIONS (2)
  - Incorrect dose administered [Unknown]
  - Anaemia [Unknown]
